FAERS Safety Report 18235208 (Version 1)
Quarter: 2020Q3

REPORT INFORMATION
  Report Type: Spontaneous
  Country: CN (occurrence: CN)
  Receive Date: 20200904
  Receipt Date: 20200904
  Transmission Date: 20201103
  Serious: Yes (Other)
  Sender: FDA-Public Use
  Company Number: CN-FRESENIUS KABI-FK202009114

PATIENT
  Age: 13 Year
  Sex: Female

DRUGS (1)
  1. METHYLPREDNISOLONE (MANUFACTURER UNKNOWN) [Suspect]
     Active Substance: METHYLPREDNISOLONE
     Indication: NEPHROTIC SYNDROME
     Route: 042

REACTIONS (2)
  - Cytomegalovirus infection [Recovering/Resolving]
  - Peritonitis viral [Recovering/Resolving]
